FAERS Safety Report 4462941-9 (Version None)
Quarter: 2004Q3

REPORT INFORMATION
  Report Type: 
  Country: None (occurrence: None)
  Receive Date: 20040927
  Receipt Date: 20040909
  Transmission Date: 20050211
  Serious: Yes (Other)
  Sender: FDA-Public Use
  Company Number: 2004-DE-04852DE

PATIENT
  Sex: Male

DRUGS (5)
  1. SPIRIVA [Suspect]
     Indication: CHRONIC OBSTRUCTIVE AIRWAYS DISEASE
     Dosage: 1 ANZ (1 IN 1 D)
     Route: 055
     Dates: start: 20030501
  2. DIPYRONE TAB [Suspect]
  3. FORADIL [Concomitant]
  4. THEOPHYLLINE [Concomitant]
  5. STEROIDS [Concomitant]

REACTIONS (6)
  - DYSPNOEA [None]
  - GENERAL PHYSICAL HEALTH DETERIORATION [None]
  - GINGIVITIS [None]
  - TOOTH DISORDER [None]
  - TOOTH LOSS [None]
  - TREATMENT NONCOMPLIANCE [None]
